FAERS Safety Report 4473376-7 (Version None)
Quarter: 2004Q4

REPORT INFORMATION
  Report Type: 
  Country: None (occurrence: None)
  Receive Date: 20041008
  Receipt Date: 20040929
  Transmission Date: 20050328
  Serious: Yes (Hospitalization)
  Sender: FDA-Public Use
  Company Number: 6010790

PATIENT
  Age: 83 Year

DRUGS (6)
  1. CARDENSIEL 2.5 MG (TABLETS) (BISOPROLOL) [Suspect]
     Dosage: 1,00 DOSAGE FORMS (1 DOSAGE FORMS, 1 IN 1 D) ORAL
     Route: 048
     Dates: start: 20040330, end: 20040414
  2. COVERSYL (TABLETS) (PERINDOPRIL) [Suspect]
     Dosage: 4,00 GM (4 MG, 1 IN 1 D) ORAL
     Route: 048
     Dates: start: 20040330, end: 20040414
  3. DIFFU K (CAPSULES) (POTASSIUM CHLORIDE) [Suspect]
     Indication: HYPOKALAEMIA
     Dosage: 2,00 DOSAGE FORMS (2 DOSAGE FORMS, 1 IN 1D) ORAL
     Route: 048
     Dates: start: 20040330, end: 20040414
  4. ALDACTONE [Suspect]
     Dosage: 1,00 DOSAGE FORMS (1 DOSAGE FORMS, 1 IN 1 D) ORAL
     Route: 048
     Dates: start: 20040330, end: 20040414
  5. FLUDEX (1,5 MG, TABLETS) (INDAPAMIDE) [Suspect]
     Dosage: 1,00 DOSAGE FORMS (1 DOSAGE FORMS, 1 IN 1 D) ORAL
     Route: 048
     Dates: start: 20040330, end: 20040414
  6. LOXEN (NICARDIPINE HYDROCHLORIDE) [Concomitant]

REACTIONS (11)
  - ASTHENIA [None]
  - BRADYCARDIA [None]
  - CARDIOMEGALY [None]
  - DEHYDRATION [None]
  - DRUG INTERACTION [None]
  - HAEMOGLOBIN DECREASED [None]
  - HYPERKALAEMIA [None]
  - HYPERTENSION [None]
  - HYPONATRAEMIA [None]
  - RENAL FAILURE [None]
  - VOMITING [None]
